FAERS Safety Report 18173434 (Version 2)
Quarter: 2020Q3

REPORT INFORMATION
  Report Type: Report from Study
  Country: US (occurrence: US)
  Receive Date: 20200819
  Receipt Date: 20200925
  Transmission Date: 20201103
  Serious: Yes (Other)
  Sender: FDA-Public Use
  Company Number: US-REGENERON PHARMACEUTICALS, INC.-2020-45100

PATIENT

DRUGS (12)
  1. LISINOPRIL. [Concomitant]
     Active Substance: LISINOPRIL
     Indication: PRODUCT USED FOR UNKNOWN INDICATION
     Dosage: TOTAL DAILY DOSE: 10 MG
     Route: 048
     Dates: start: 2010
  2. CEMIPLIMAB [Suspect]
     Active Substance: CEMIPLIMAB
     Indication: MALIGNANT MELANOMA
     Dosage: 3 MG/KG, QOW
     Route: 042
     Dates: start: 20200603, end: 20200603
  3. ASPIRIN                            /00002701/ [Concomitant]
     Active Substance: ASPIRIN
     Indication: PRODUCT USED FOR UNKNOWN INDICATION
     Dosage: TOTAL DAILY DOSE: 81 MG
     Route: 048
     Dates: start: 20200208
  4. BENADRYL [Concomitant]
     Active Substance: DIPHENHYDRAMINE HYDROCHLORIDE
     Indication: PRODUCT USED FOR UNKNOWN INDICATION
     Dosage: 50 MG, 1X
     Route: 048
     Dates: start: 20200603
  5. DECADRON [Concomitant]
     Active Substance: DEXAMETHASONE
     Indication: PRODUCT USED FOR UNKNOWN INDICATION
     Dosage: 10 MG, 1X
     Route: 042
     Dates: start: 20200603
  6. CEMIPLIMAB [Suspect]
     Active Substance: CEMIPLIMAB
     Dosage: 3 MG/KG, QOW
     Route: 042
     Dates: start: 20200401, end: 20200401
  7. OXYCODONE [Concomitant]
     Active Substance: OXYCODONE
     Indication: PRODUCT USED FOR UNKNOWN INDICATION
     Dosage: TOTAL DAILY DOSE: 5 MG
     Route: 048
     Dates: start: 20200408
  8. K?PHOS NEUTRAL [Concomitant]
     Active Substance: POTASSIUM PHOSPHATE\SODIUM PHOSPHATE
     Indication: PRODUCT USED FOR UNKNOWN INDICATION
     Dosage: TOTAL DAILY DOSE: 250 MG
     Route: 048
     Dates: start: 20200603
  9. CLINDAMYCINE                       /00166001/ [Concomitant]
     Active Substance: CLINDAMYCIN
     Indication: PRODUCT USED FOR UNKNOWN INDICATION
     Dosage: TOTAL DAILY DOSE: 1
     Route: 061
     Dates: start: 20200603
  10. SAR439459 [Suspect]
     Active Substance: SAR-439459
     Indication: MALIGNANT MELANOMA
     Dosage: 22.5 MG/KG, QOW
     Route: 042
     Dates: start: 20200603, end: 20200603
  11. SAR439459 [Suspect]
     Active Substance: SAR-439459
     Dosage: 0.05 MG/KG, QOW
     Route: 042
     Dates: start: 20200401, end: 20200401
  12. ACETAMINOPHEN. [Concomitant]
     Active Substance: ACETAMINOPHEN
     Indication: PRODUCT USED FOR UNKNOWN INDICATION
     Dosage: TOTAL DAILY DOSE: 81 MG
     Route: 048
     Dates: start: 20200208

REACTIONS (1)
  - Epistaxis [Recovered/Resolved]

NARRATIVE: CASE EVENT DATE: 20200610
